FAERS Safety Report 8262058-1 (Version None)
Quarter: 2012Q2

REPORT INFORMATION
  Report Type: 
  Country: None (occurrence: None)
  Receive Date: 20120405
  Receipt Date: 20120328
  Transmission Date: 20120825
  Serious: Yes (Other)
  Sender: FDA-Public Use
  Company Number: PHHY2012AU027169

PATIENT
  Sex: Female

DRUGS (1)
  1. SYNTOCINON [Suspect]
     Dosage: UNK

REACTIONS (1)
  - POSTPARTUM HAEMORRHAGE [None]
